FAERS Safety Report 25498163 (Version 1)
Quarter: 2025Q3

REPORT INFORMATION
  Report Type: Spontaneous
  Country: US (occurrence: US)
  Receive Date: 20250701
  Receipt Date: 20250701
  Transmission Date: 20251021
  Serious: No
  Sender: PADAGIS
  Company Number: US-PADAGIS-2025PAD00775

PATIENT

DRUGS (3)
  1. DESONIDE [Suspect]
     Active Substance: DESONIDE
     Indication: Cheilitis granulomatosa
     Route: 065
  2. DOXYCYCLINE [Suspect]
     Active Substance: DOXYCYCLINE
     Indication: Cheilitis granulomatosa
     Route: 065
  3. TRIAMCINOLONE ACETONIDE [Suspect]
     Active Substance: TRIAMCINOLONE ACETONIDE
     Indication: Cheilitis granulomatosa
     Route: 030

REACTIONS (1)
  - Therapy partial responder [Unknown]
